FAERS Safety Report 19753295 (Version 10)
Quarter: 2022Q1

REPORT INFORMATION
  Report Type: Report from Study
  Country: US (occurrence: US)
  Receive Date: 20210826
  Receipt Date: 20220216
  Transmission Date: 20220423
  Serious: Yes (Other)
  Sender: FDA-Public Use
  Company Number: US-PFIZER INC-202101041913

PATIENT
  Age: 67 Year
  Sex: Female

DRUGS (8)
  1. IBRANCE [Suspect]
     Active Substance: PALBOCICLIB
     Indication: Breast cancer
     Dosage: 125 MG, CYCLIC (DAY 1-21 OF 28 DAY CYCLE)
     Route: 048
     Dates: start: 202008
  2. IBRANCE [Suspect]
     Active Substance: PALBOCICLIB
     Indication: Rheumatoid arthritis
     Dosage: 100 MG, CYCLIC (DAILY FOR 21 DAYS ON AND 7 DAYS OFF)
     Route: 048
     Dates: start: 20210719
  3. IBRANCE [Suspect]
     Active Substance: PALBOCICLIB
     Dosage: 100 MG, CYCLIC (DAY 1-21 OF 28 DAY CYCLE)
     Route: 048
     Dates: start: 202108
  4. IBRANCE [Suspect]
     Active Substance: PALBOCICLIB
     Dosage: 100 MG, CYCLIC (DAILY DAY 1-21 OF 28 DAY CYCLE)
     Route: 048
     Dates: start: 20210816
  5. IBRANCE [Suspect]
     Active Substance: PALBOCICLIB
     Dosage: 100 MG, CYCLIC (QD)
     Route: 048
     Dates: start: 20211117
  6. IBRANCE [Suspect]
     Active Substance: PALBOCICLIB
     Dosage: 100 MG, CYCLIC (DAILY DAY 1-21 OF 28 DAY CYCLE)
     Dates: end: 20211207
  7. IBRANCE [Suspect]
     Active Substance: PALBOCICLIB
     Dosage: 75 MG, CYCLIC (DAILY DAY 1-21 OF 28 DAY CYCLE)
     Route: 048
     Dates: start: 20211222
  8. LETROZOLE [Concomitant]
     Active Substance: LETROZOLE
     Dosage: UNK

REACTIONS (31)
  - Second primary malignancy [Unknown]
  - Lung neoplasm [Unknown]
  - Weight decreased [Unknown]
  - White blood cell count decreased [Recovering/Resolving]
  - Skin lesion [Recovering/Resolving]
  - Herpes virus infection [Unknown]
  - Flatulence [Unknown]
  - Constipation [Unknown]
  - Diarrhoea [Unknown]
  - Nausea [Unknown]
  - Pain of skin [Unknown]
  - Pruritus [Unknown]
  - Alopecia [Not Recovered/Not Resolved]
  - Dry eye [Unknown]
  - Red blood cell count decreased [Unknown]
  - Abdominal distension [Unknown]
  - Eructation [Unknown]
  - Cough [Unknown]
  - Neutrophil count decreased [Unknown]
  - Decreased appetite [Unknown]
  - Taste disorder [Unknown]
  - Hypoaesthesia [Unknown]
  - Rash [Unknown]
  - Nasopharyngitis [Recovered/Resolved]
  - Headache [Recovered/Resolved]
  - Lacrimation increased [Not Recovered/Not Resolved]
  - Throat clearing [Recovered/Resolved]
  - Anxiety [Unknown]
  - Pain in extremity [Unknown]
  - Conjunctival hyperaemia [Not Recovered/Not Resolved]
  - Off label use [Unknown]
